FAERS Safety Report 11975898 (Version 1)
Quarter: 2016Q1

REPORT INFORMATION
  Report Type: Spontaneous
  Country: BR (occurrence: BR)
  Receive Date: 20160129
  Receipt Date: 20160129
  Transmission Date: 20160526
  Serious: Yes (Other)
  Sender: FDA-Public Use
  Company Number: BR-ROCHE-1702286

PATIENT
  Age: 73 Year
  Sex: Female

DRUGS (1)
  1. RIVOTRIL [Suspect]
     Active Substance: CLONAZEPAM
     Indication: PRODUCT USED FOR UNKNOWN INDICATION
     Dosage: 1 TABLET IN THE MORNING AND?ANOTHER ONE AT NIGHT
     Route: 048
     Dates: start: 1999

REACTIONS (3)
  - Fatigue [Not Recovered/Not Resolved]
  - Malignant neoplasm of unknown primary site [Recovered/Resolved]
  - Nervousness [Not Recovered/Not Resolved]
